FAERS Safety Report 6769724-5 (Version None)
Quarter: 2010Q2

REPORT INFORMATION
  Report Type: 
  Country: None (occurrence: None)
  Receive Date: 20100615
  Receipt Date: 20100610
  Transmission Date: 20101027
  Serious: Yes (Life-Threatening, Hospitalization)
  Sender: FDA-Public Use
  Company Number: PHHY2010JP37785

PATIENT

DRUGS (5)
  1. FLUVASTATIN [Suspect]
     Dosage: 30 MG, UNK
     Route: 048
     Dates: start: 20060101
  2. BLOPRESS [Concomitant]
     Dosage: 12 MG, UNK
     Route: 048
     Dates: start: 20050101
  3. BAYASPIRIN [Concomitant]
     Dosage: UNK
     Route: 048
     Dates: start: 20060101
  4. PLAVIX [Concomitant]
     Dosage: 75 MG, UNK
     Route: 048
     Dates: start: 20060101
  5. ZYLORIC [Concomitant]
     Dosage: 100 MG, UNK
     Route: 048
     Dates: start: 20090101

REACTIONS (2)
  - ANAPHYLACTIC SHOCK [None]
  - CARDIAC ARREST [None]
